FAERS Safety Report 5372293-8 (Version None)
Quarter: 2007Q2

REPORT INFORMATION
  Report Type: 
  Country: None (occurrence: None)
  Receive Date: 20070620
  Receipt Date: 20070314
  Transmission Date: 20071010
  Serious: No
  Sender: FDA-Public Use
  Company Number: 2007RL000109

PATIENT
  Age: 93 Year
  Sex: Female

DRUGS (5)
  1. OMACOR [Suspect]
     Indication: DRUG USE FOR UNKNOWN INDICATION
     Dosage: 2 GM;QD;PO
     Route: 048
     Dates: start: 20061001, end: 20070101
  2. LEVOXYL [Concomitant]
  3. ATENOLOL [Concomitant]
  4. ZETIA [Concomitant]
  5. COUMADIN [Concomitant]

REACTIONS (4)
  - DYSPHAGIA [None]
  - FOREIGN BODY TRAUMA [None]
  - OESOPHAGEAL DISCOMFORT [None]
  - THROAT IRRITATION [None]
